FAERS Safety Report 5078289-8 (Version None)
Quarter: 2006Q3

REPORT INFORMATION
  Report Type: 
  Country: None (occurrence: None)
  Receive Date: 20060811
  Receipt Date: 20060718
  Transmission Date: 20061208
  Serious: Yes (Hospitalization)
  Sender: FDA-Public Use
  Company Number: JP-MERCK-0608USA01579

PATIENT
  Age: 50 Year
  Sex: Female

DRUGS (7)
  1. COZAAR [Suspect]
     Indication: HYPERTENSION
     Route: 048
     Dates: start: 20000821
  2. RYTHMODAN [Concomitant]
     Indication: ARRHYTHMIA
     Route: 048
  3. FERROMIA [Concomitant]
     Indication: IRON DEFICIENCY
     Route: 048
  4. KREMEZIN [Concomitant]
     Indication: AZOTAEMIA
     Route: 048
  5. CARDENALIN [Concomitant]
     Indication: HYPERTENSION
     Route: 048
  6. ADALAT [Concomitant]
     Indication: HYPERTENSION
     Route: 048
  7. DEPAS [Concomitant]
     Indication: HYPERTENSION
     Route: 048

REACTIONS (1)
  - HYPOGLYCAEMIA [None]
